FAERS Safety Report 24031621 (Version 10)
Quarter: 2025Q2

REPORT INFORMATION
  Report Type: Spontaneous
  Country: DE (occurrence: DE)
  Receive Date: 20240629
  Receipt Date: 20250527
  Transmission Date: 20250717
  Serious: Yes (Death, Hospitalization, Other)
  Sender: AUROBINDO
  Company Number: DE-002147023-NVSC2021DE041439

PATIENT
  Sex: Female
  Weight: 65 kg

DRUGS (12)
  1. FULVESTRANT [Suspect]
     Active Substance: FULVESTRANT
     Indication: Hormone receptor positive HER2 negative breast cancer
     Dosage: 500 MILLIGRAM, ONCE A DAY  (EVERY 4 WEEKS)
     Route: 030
     Dates: start: 20191220, end: 20231016
  2. FULVESTRANT [Suspect]
     Active Substance: FULVESTRANT
     Indication: Breast cancer
  3. KISQALI [Suspect]
     Active Substance: RIBOCICLIB SUCCINATE
     Indication: Hormone receptor positive HER2 negative breast cancer
     Dosage: 400 MILLIGRAM, ONCE A DAY (
     Route: 048
     Dates: start: 20200605, end: 20200702
  4. KISQALI [Suspect]
     Active Substance: RIBOCICLIB SUCCINATE
     Indication: Breast cancer
     Dosage: 400 MILLIGRAM, ONCE A DA
     Route: 048
     Dates: start: 20210319, end: 20220310
  5. KISQALI [Suspect]
     Active Substance: RIBOCICLIB SUCCINATE
     Dosage: 600 MILLIGRAM, ONCE A DAY (
     Route: 048
     Dates: start: 20200703, end: 20210308
  6. KISQALI [Suspect]
     Active Substance: RIBOCICLIB SUCCINATE
     Dosage: 600 MILLIGRAM, ONCE A DAY (
     Route: 048
     Dates: start: 20200313, end: 20200604
  7. KISQALI [Suspect]
     Active Substance: RIBOCICLIB SUCCINATE
     Dosage: 400 MILLIGRAM, ONCE A DAY
     Route: 048
     Dates: start: 20191220, end: 20200312
  8. KISQALI [Suspect]
     Active Substance: RIBOCICLIB SUCCINATE
     Dosage: 200 MILLIGRAM, ONCE A DAY
     Route: 048
     Dates: start: 20221028, end: 20230216
  9. KISQALI [Suspect]
     Active Substance: RIBOCICLIB SUCCINATE
     Dosage: 200 MILLIGRAM, ONCE A DAY
     Route: 048
     Dates: start: 20220318, end: 20221010
  10. KISQALI [Suspect]
     Active Substance: RIBOCICLIB SUCCINATE
     Dosage: 200 MILLIGRAM, ONCE A DAY (
     Route: 048
     Dates: start: 20230317
  11. AMANTADINE [Concomitant]
     Active Substance: AMANTADINE
     Indication: Parkinsonism
     Route: 042
     Dates: start: 20231028, end: 20231107
  12. L DOPA [Concomitant]
     Active Substance: LEVODOPA
     Indication: Parkinsonism
     Route: 048
     Dates: start: 20231028, end: 20231107

REACTIONS (42)
  - Hepatic failure [Fatal]
  - Metastases to liver [Fatal]
  - Breast cancer [Fatal]
  - Malignant neoplasm progression [Fatal]
  - Parkinsonism [Fatal]
  - Dysphagia [Fatal]
  - Dysarthria [Fatal]
  - Corticobasal degeneration [Unknown]
  - Fall [Recovering/Resolving]
  - Choking [Recovering/Resolving]
  - Aspiration [Recovering/Resolving]
  - Spinal cord haematoma [Unknown]
  - Gaze palsy [Unknown]
  - Respiratory failure [Unknown]
  - Polyneuropathy [Unknown]
  - General physical health deterioration [Recovering/Resolving]
  - Rib fracture [Recovered/Resolved with Sequelae]
  - Inflammation [Unknown]
  - Dyspnoea [Unknown]
  - Endocarditis [Unknown]
  - Pain [Unknown]
  - Head injury [Unknown]
  - Mobility decreased [Not Recovered/Not Resolved]
  - Cataract [Not Recovered/Not Resolved]
  - Renal impairment [Recovering/Resolving]
  - Haematoma [Recovering/Resolving]
  - Spinal fracture [Recovering/Resolving]
  - Neutropenia [Recovered/Resolved]
  - Muscular weakness [Not Recovered/Not Resolved]
  - Ocular discomfort [Not Recovered/Not Resolved]
  - Speech disorder [Not Recovered/Not Resolved]
  - Goitre [Not Recovered/Not Resolved]
  - Vocal cord paralysis [Not Recovered/Not Resolved]
  - Sensory disturbance [Not Recovered/Not Resolved]
  - Fatigue [Not Recovered/Not Resolved]
  - Asthenia [Not Recovered/Not Resolved]
  - Sleep disorder [Unknown]
  - Dizziness [Unknown]
  - Skin laceration [Recovering/Resolving]
  - Swelling [Recovering/Resolving]
  - Periorbital haematoma [Recovering/Resolving]
  - Off label use [Unknown]

NARRATIVE: CASE EVENT DATE: 20200409
